FAERS Safety Report 6642323-1 (Version None)
Quarter: 2010Q1

REPORT INFORMATION
  Report Type: 
  Country: None (occurrence: None)
  Receive Date: 20100319
  Receipt Date: 20030926
  Transmission Date: 20100710
  Serious: Yes (Life-Threatening)
  Sender: FDA-Public Use
  Company Number: RU-ROCHE-347943

PATIENT
  Sex: Female
  Weight: 72 kg

DRUGS (11)
  1. TRASTUZUMAB [Suspect]
     Indication: BREAST CANCER
     Route: 042
     Dates: start: 20030606, end: 20030925
  2. TRASTUZUMAB [Suspect]
     Route: 042
     Dates: start: 20030131, end: 20030605
  3. TRASTUZUMAB [Suspect]
     Route: 042
     Dates: start: 20030110, end: 20030110
  4. DOXORUBICIN HCL [Suspect]
     Indication: BREAST CANCER
     Dosage: ADMINISTERED 3 WEEKLY FOR 3 CYCLES.
     Route: 042
     Dates: start: 20030110, end: 20030221
  5. PACLITAXEL [Suspect]
     Indication: BREAST CANCER
     Dosage: ADMINISTERED 3 WEEKLY FOR 3 CYCLES.
     Route: 042
     Dates: start: 20030110, end: 20030221
  6. PACLITAXEL [Suspect]
     Route: 042
     Dates: start: 20030314, end: 20030516
  7. CYCLOPHOSPHAMIDE [Suspect]
     Indication: BREAST CANCER
     Dosage: ON DAYS 1 + 8 EVERY FOUR WEEKS
     Route: 042
     Dates: start: 20030606, end: 20030811
  8. FLUOROURACIL [Suspect]
     Indication: BREAST CANCER
     Dosage: ON DAYS 1 + 8 EVERY 4 WEEKS
     Route: 042
     Dates: start: 20030606, end: 20030811
  9. METHOTREXATE [Suspect]
     Indication: BREAST CANCER
     Dosage: ON DAYS 1 + 8 EVERY FOUR WEEKS.
     Route: 042
     Dates: start: 20030606, end: 20030811
  10. ENALAPRIL MALEATE [Concomitant]
     Dates: start: 20000101
  11. CEFAZOLIN [Concomitant]
     Dates: start: 20030922, end: 20030924

REACTIONS (1)
  - PULMONARY EMBOLISM [None]
